FAERS Safety Report 21556330 (Version 1)
Quarter: 2022Q4

REPORT INFORMATION
  Report Type: Report from Study
  Country: US (occurrence: US)
  Receive Date: 20221104
  Receipt Date: 20221104
  Transmission Date: 20230112
  Serious: Yes (Other)
  Sender: FDA-Public Use
  Company Number: US-JNJFOC-20221055037

PATIENT
  Sex: Female

DRUGS (1)
  1. STELARA [Suspect]
     Active Substance: USTEKINUMAB
     Indication: Crohn^s disease
     Route: 040

REACTIONS (6)
  - Loss of consciousness [Recovered/Resolved]
  - Throat tightness [Unknown]
  - Abdominal distension [Recovered/Resolved]
  - Rhinorrhoea [Unknown]
  - Hyperhidrosis [Recovered/Resolved]
  - Infusion related reaction [Unknown]
